FAERS Safety Report 6976419-1 (Version None)
Quarter: 2010Q3

REPORT INFORMATION
  Report Type: 
  Country: None (occurrence: None)
  Receive Date: 20100910
  Receipt Date: 20100831
  Transmission Date: 20110219
  Serious: Yes (Other)
  Sender: FDA-Public Use
  Company Number: US-PFIZER INC-2007057988

PATIENT
  Sex: Female
  Weight: 82.993 kg

DRUGS (6)
  1. LYRICA [Suspect]
     Indication: FIBROMYALGIA
     Route: 048
     Dates: start: 20060701, end: 20070301
  2. LYRICA [Suspect]
     Indication: PAIN
  3. VESICARE [Suspect]
     Indication: BLADDER PAIN
     Dosage: UNK
  4. TRAMADOL HCL [Concomitant]
     Dosage: UNK
  5. AMBIEN [Concomitant]
     Indication: SLEEP DISORDER
     Dosage: UNK
  6. VICODIN [Concomitant]
     Dosage: UNK

REACTIONS (10)
  - BLOOD PRESSURE INCREASED [None]
  - DIZZINESS [None]
  - DRUG INEFFECTIVE [None]
  - FALL [None]
  - FEELING ABNORMAL [None]
  - HEADACHE [None]
  - MALAISE [None]
  - NEUROPATHY PERIPHERAL [None]
  - VIITH NERVE PARALYSIS [None]
  - WEIGHT DECREASED [None]
